FAERS Safety Report 26021424 (Version 1)
Quarter: 2025Q4

REPORT INFORMATION
  Report Type: Spontaneous
  Country: GB (occurrence: GB)
  Receive Date: 20251110
  Receipt Date: 20251110
  Transmission Date: 20260118
  Serious: Yes (Other)
  Sender: MYLAN
  Company Number: GB-MHRA-TPP13826463C6098334YC1759707962706

PATIENT
  Age: 73 Year
  Sex: Male
  Weight: 85 kg

DRUGS (28)
  1. ATORVASTATIN [Suspect]
     Active Substance: ATORVASTATIN
     Indication: Ill-defined disorder
     Dosage: 20 MILLIGRAM, QD (24 HOURS)
     Dates: start: 20250808
  2. ATORVASTATIN [Suspect]
     Active Substance: ATORVASTATIN
     Dosage: 20 MILLIGRAM, QD (24 HOURS)
     Route: 065
     Dates: start: 20250808
  3. ATORVASTATIN [Suspect]
     Active Substance: ATORVASTATIN
     Dosage: 20 MILLIGRAM, QD (24 HOURS)
     Route: 065
     Dates: start: 20250808
  4. ATORVASTATIN [Suspect]
     Active Substance: ATORVASTATIN
     Dosage: 20 MILLIGRAM, QD (24 HOURS)
     Dates: start: 20250808
  5. CREON [Concomitant]
     Active Substance: PANCRELIPASE AMYLASE\PANCRELIPASE LIPASE\PANCRELIPASE PROTEASE
     Indication: Ill-defined disorder
     Dosage: 12 DOSAGE FORM, Q8H (12 CAPSULES THREE X DAILY)
     Dates: start: 20250205
  6. CREON [Concomitant]
     Active Substance: PANCRELIPASE AMYLASE\PANCRELIPASE LIPASE\PANCRELIPASE PROTEASE
     Dosage: 12 DOSAGE FORM, Q8H (12 CAPSULES THREE X DAILY)
     Route: 065
     Dates: start: 20250205
  7. CREON [Concomitant]
     Active Substance: PANCRELIPASE AMYLASE\PANCRELIPASE LIPASE\PANCRELIPASE PROTEASE
     Dosage: 12 DOSAGE FORM, Q8H (12 CAPSULES THREE X DAILY)
     Route: 065
     Dates: start: 20250205
  8. CREON [Concomitant]
     Active Substance: PANCRELIPASE AMYLASE\PANCRELIPASE LIPASE\PANCRELIPASE PROTEASE
     Dosage: 12 DOSAGE FORM, Q8H (12 CAPSULES THREE X DAILY)
     Dates: start: 20250205
  9. EZETIMIBE [Concomitant]
     Active Substance: EZETIMIBE
     Indication: Hypercholesterolaemia
     Dosage: 1 DOSAGE FORM, QD (24 HOURS)
     Dates: start: 20250929
  10. EZETIMIBE [Concomitant]
     Active Substance: EZETIMIBE
     Dosage: 1 DOSAGE FORM, QD (24 HOURS)
     Route: 065
     Dates: start: 20250929
  11. EZETIMIBE [Concomitant]
     Active Substance: EZETIMIBE
     Dosage: 1 DOSAGE FORM, QD (24 HOURS)
     Route: 065
     Dates: start: 20250929
  12. EZETIMIBE [Concomitant]
     Active Substance: EZETIMIBE
     Dosage: 1 DOSAGE FORM, QD (24 HOURS)
     Dates: start: 20250929
  13. FERROUS SULFATE [Concomitant]
     Active Substance: FERROUS SULFATE
     Indication: Ill-defined disorder
     Dosage: 1 DOSAGE FORM, QD (24 HOURS)
     Dates: start: 20241016
  14. FERROUS SULFATE [Concomitant]
     Active Substance: FERROUS SULFATE
     Dosage: 1 DOSAGE FORM, QD (24 HOURS)
     Route: 065
     Dates: start: 20241016
  15. FERROUS SULFATE [Concomitant]
     Active Substance: FERROUS SULFATE
     Dosage: 1 DOSAGE FORM, QD (24 HOURS)
     Route: 065
     Dates: start: 20241016
  16. FERROUS SULFATE [Concomitant]
     Active Substance: FERROUS SULFATE
     Dosage: 1 DOSAGE FORM, QD (24 HOURS)
     Dates: start: 20241016
  17. VITAMINS [Concomitant]
     Active Substance: VITAMINS
     Indication: Ill-defined disorder
     Dosage: 1 DOSAGE FORM, QD (24 HOURS)
     Dates: start: 20241115
  18. VITAMINS [Concomitant]
     Active Substance: VITAMINS
     Dosage: 1 DOSAGE FORM, QD (24 HOURS)
     Route: 065
     Dates: start: 20241115
  19. VITAMINS [Concomitant]
     Active Substance: VITAMINS
     Dosage: 1 DOSAGE FORM, QD (24 HOURS)
     Route: 065
     Dates: start: 20241115
  20. VITAMINS [Concomitant]
     Active Substance: VITAMINS
     Dosage: 1 DOSAGE FORM, QD (24 HOURS)
     Dates: start: 20241115
  21. ACETAMINOPHEN [Concomitant]
     Active Substance: ACETAMINOPHEN
     Indication: Ill-defined disorder
     Dosage: 2 DOSAGE FORM, Q6H (6 HOURS)
     Dates: start: 20241115
  22. ACETAMINOPHEN [Concomitant]
     Active Substance: ACETAMINOPHEN
     Dosage: 2 DOSAGE FORM, Q6H (6 HOURS)
     Route: 065
     Dates: start: 20241115
  23. ACETAMINOPHEN [Concomitant]
     Active Substance: ACETAMINOPHEN
     Dosage: 2 DOSAGE FORM, Q6H (6 HOURS)
     Route: 065
     Dates: start: 20241115
  24. ACETAMINOPHEN [Concomitant]
     Active Substance: ACETAMINOPHEN
     Dosage: 2 DOSAGE FORM, Q6H (6 HOURS)
     Dates: start: 20241115
  25. OMEPRAZOLE [Concomitant]
     Active Substance: OMEPRAZOLE
     Indication: Ill-defined disorder
     Dosage: 1 DOSAGE FORM, QD (24 HOURS)
     Dates: start: 20250508
  26. OMEPRAZOLE [Concomitant]
     Active Substance: OMEPRAZOLE
     Dosage: 1 DOSAGE FORM, QD (24 HOURS)
     Route: 065
     Dates: start: 20250508
  27. OMEPRAZOLE [Concomitant]
     Active Substance: OMEPRAZOLE
     Dosage: 1 DOSAGE FORM, QD (24 HOURS)
     Route: 065
     Dates: start: 20250508
  28. OMEPRAZOLE [Concomitant]
     Active Substance: OMEPRAZOLE
     Dosage: 1 DOSAGE FORM, QD (24 HOURS)
     Dates: start: 20250508

REACTIONS (2)
  - Rhinorrhoea [Recovered/Resolved]
  - Sneezing [Recovered/Resolved]

NARRATIVE: CASE EVENT DATE: 20251006
